FAERS Safety Report 8601027-6 (Version None)
Quarter: 2012Q3

REPORT INFORMATION
  Report Type: 
  Country: None (occurrence: None)
  Receive Date: 20120817
  Receipt Date: 20120807
  Transmission Date: 20120928
  Serious: Yes (Other)
  Sender: FDA-Public Use
  Company Number: JP-ASTELLAS-2012JP007520

PATIENT
  Age: 81 Year
  Sex: Female

DRUGS (14)
  1. CEFMENOXIME [Concomitant]
     Indication: ENDOPHTHALMITIS
     Route: 047
  2. FUNGUARD [Suspect]
     Dosage: 150 MG, UNKNOWN/D
     Route: 041
  3. VORICONAZOLE [Concomitant]
     Indication: EYE INFECTION FUNGAL
     Dosage: 400 MG, UNKNOWN/D
     Route: 041
  4. LEVOFLOXACIN [Concomitant]
     Indication: ENDOPHTHALMITIS
     Route: 047
  5. PREDNISOLONE [Concomitant]
     Indication: ENDOPHTHALMITIS
     Dosage: 10 MG, UNKNOWN/D
     Route: 065
  6. FUNGUARD [Suspect]
     Indication: EYE INFECTION FUNGAL
     Route: 047
  7. PIMARICIN [Concomitant]
     Indication: EYE INFECTION FUNGAL
     Route: 047
  8. ITRACONAZOLE [Concomitant]
     Indication: EYE INFECTION FUNGAL
     Dosage: 200 MG, UNKNOWN/D
     Route: 041
  9. ATROPINE [Concomitant]
     Indication: ENDOPHTHALMITIS
     Route: 047
  10. VORICONAZOLE [Concomitant]
     Route: 047
  11. AMPHOTERICIN B [Concomitant]
     Indication: EYE INFECTION FUNGAL
     Route: 047
  12. BETAMETHASONE [Concomitant]
     Indication: ENDOPHTHALMITIS
     Route: 047
  13. CEFPIROME [Concomitant]
     Indication: ENDOPHTHALMITIS
     Dosage: 2 G, UNKNOWN/D
     Route: 041
  14. ACETAZOLAMIDE [Concomitant]
     Indication: ENDOPHTHALMITIS
     Dosage: 500 MG, UNKNOWN/D
     Route: 065

REACTIONS (2)
  - DRUG INEFFECTIVE FOR UNAPPROVED INDICATION [None]
  - EYE INFECTION FUNGAL [None]
